FAERS Safety Report 20895849 (Version 1)
Quarter: 2022Q2

REPORT INFORMATION
  Report Type: Spontaneous
  Country: US (occurrence: None)
  Receive Date: 20220529
  Receipt Date: 20220529
  Transmission Date: 20220720
  Serious: Yes (Disabling)
  Sender: FDA-Public Use
  Company Number: None

PATIENT
  Age: 26 Year
  Sex: Female
  Weight: 106.2 kg

DRUGS (4)
  1. LEVOCETIRIZINE [Suspect]
     Active Substance: LEVOCETIRIZINE
     Indication: Urticaria chronic
     Dosage: OTHER QUANTITY : 30 TABLET(S);?
     Route: 048
     Dates: start: 20220427, end: 20220525
  2. LEVOCETIRIZINE [Suspect]
     Active Substance: LEVOCETIRIZINE
     Indication: Multiple allergies
  3. DULOXETINE [Concomitant]
     Active Substance: DULOXETINE
  4. METOPROLOL [Concomitant]
     Active Substance: METOPROLOL

REACTIONS (7)
  - Hyperventilation [None]
  - Presyncope [None]
  - Hypoaesthesia [None]
  - Hypoaesthesia [None]
  - Musculoskeletal disorder [None]
  - Judgement impaired [None]
  - Mental disorder [None]

NARRATIVE: CASE EVENT DATE: 20220520
